FAERS Safety Report 18952955 (Version 1)
Quarter: 2021Q1

REPORT INFORMATION
  Report Type: Spontaneous
  Country: US (occurrence: US)
  Receive Date: 20210301
  Receipt Date: 20210301
  Transmission Date: 20210420
  Serious: No
  Sender: FDA-Public Use
  Company Number: US-AMGEN-USASP2021031065

PATIENT
  Age: 56 Year
  Sex: Female

DRUGS (9)
  1. AMOXICILLIN. [Concomitant]
     Active Substance: AMOXICILLIN
     Route: 065
  2. OTEZLA [Suspect]
     Active Substance: APREMILAST
     Indication: PSORIATIC ARTHROPATHY
     Dosage: 30 MILLIGRAM, BID
     Route: 048
     Dates: start: 20200219
  3. AZELASTINE. [Concomitant]
     Active Substance: AZELASTINE HYDROCHLORIDE
     Route: 065
  4. FLUCONAZOLE. [Concomitant]
     Active Substance: FLUCONAZOLE
     Route: 065
  5. METHOTREXATE. [Concomitant]
     Active Substance: METHOTREXATE
     Route: 065
  6. MELOXICAM. [Concomitant]
     Active Substance: MELOXICAM
     Route: 065
  7. AMOXICILLIN AND CLAVULANATE POTASSIUM [AMOXICILLIN;CLAVULANATE POTASSI [Concomitant]
     Dosage: UNK
  8. NITROFURANTIN [Concomitant]
     Active Substance: NITROFURANTOIN
     Route: 065
  9. FLUTICASONE. [Concomitant]
     Active Substance: FLUTICASONE
     Route: 065

REACTIONS (1)
  - Psoriasis [Recovered/Resolved]

NARRATIVE: CASE EVENT DATE: 20210203
